FAERS Safety Report 8000143-X (Version None)
Quarter: 2011Q4

REPORT INFORMATION
  Report Type: 
  Country: None (occurrence: None)
  Receive Date: 20111220
  Receipt Date: 20111220
  Transmission Date: 20120403
  Serious: Yes (Other)
  Sender: FDA-Public Use
  Company Number: None

PATIENT
  Age: 27 Year
  Sex: Female
  Weight: 65.7716 kg

DRUGS (1)
  1. HCG 6X, 12X, 30X, 60X MY HCG SOURCE [Suspect]
     Indication: WEIGHT CONTROL
     Dosage: 10 DROPS 3X DAILY ORAL
     Route: 048

REACTIONS (4)
  - MALAISE [None]
  - CHOLELITHIASIS [None]
  - DYSPEPSIA [None]
  - PAIN [None]
